FAERS Safety Report 16749128 (Version 1)
Quarter: 2019Q3

REPORT INFORMATION
  Report Type: Spontaneous
  Country: FR (occurrence: FR)
  Receive Date: 20190828
  Receipt Date: 20190828
  Transmission Date: 20191005
  Serious: Yes (Hospitalization)
  Sender: FDA-Public Use
  Company Number: FR-TEVA-2019-FR-1097774

PATIENT
  Age: 69 Year
  Sex: Male
  Weight: 55 kg

DRUGS (11)
  1. BACTRIM [Suspect]
     Active Substance: SULFAMETHOXAZOLE\TRIMETHOPRIM
     Indication: OPPORTUNISTIC INFECTION PROPHYLAXIS
     Dosage: 3 DOSAGE FORM
     Route: 048
     Dates: start: 20190403, end: 20190408
  2. VALACICLOVIR [Suspect]
     Active Substance: VALACYCLOVIR HYDROCHLORIDE
     Indication: OPPORTUNISTIC INFECTION PROPHYLAXIS
     Dosage: 1000 MG
     Route: 048
     Dates: start: 20190403, end: 20190408
  3. DEXCHLORPHENIRAMINE (MALEATE DE) [Concomitant]
     Active Substance: DEXCHLORPHENIRAMINE MALEATE
     Indication: PREMEDICATION
     Dosage: 5 MG
     Route: 042
     Dates: start: 20190325
  4. METHOTREXATE. [Concomitant]
     Active Substance: METHOTREXATE
     Indication: WALDENSTROM^S MACROGLOBULINAEMIA
     Dosage: 15 MG
     Route: 037
     Dates: start: 20190401
  5. CYTARABINE. [Concomitant]
     Active Substance: CYTARABINE
     Indication: WALDENSTROM^S MACROGLOBULINAEMIA
     Dosage: 40 MG
     Route: 037
     Dates: start: 20190401
  6. PARACETAMOL [Concomitant]
     Active Substance: ACETAMINOPHEN
     Dosage: 1 GRAM
     Route: 042
     Dates: start: 20190325
  7. PREDNISONE. [Concomitant]
     Active Substance: PREDNISONE
     Indication: PREMEDICATION
     Dosage: 70 MG
     Route: 048
     Dates: start: 20190325
  8. RITUXIMAB ((MAMMIFERE/HAMSTER/CELLULES CHO)) [Concomitant]
     Active Substance: RITUXIMAB
     Indication: WALDENSTROM^S MACROGLOBULINAEMIA
     Dosage: 650 MG
     Route: 041
     Dates: start: 20190325
  9. METHYLPREDNISOLONE. [Concomitant]
     Active Substance: METHYLPREDNISOLONE
     Indication: WALDENSTROM^S MACROGLOBULINAEMIA
     Dosage: 20 MG
     Route: 039
     Dates: start: 20190325
  10. TINZAPARINE SODIQUE ((MAMMIFERE/PORC/MUQUEUSE INTESTINALE)) [Concomitant]
     Active Substance: TINZAPARIN SODIUM
     Indication: THROMBOSIS PROPHYLAXIS
     Dosage: 12000 IU
     Route: 058
     Dates: end: 20190416
  11. FOLINATE DE CALCIUM [Concomitant]
     Active Substance: LEUCOVORIN CALCIUM
     Indication: PROPHYLAXIS
     Dosage: 1 DOSAGE FORM
     Route: 048
     Dates: start: 20190407

REACTIONS (1)
  - Pancytopenia [Recovered/Resolved]

NARRATIVE: CASE EVENT DATE: 20190408
